FAERS Safety Report 10977899 (Version 1)
Quarter: 2015Q2

REPORT INFORMATION
  Report Type: Spontaneous
  Country: IQ (occurrence: IQ)
  Receive Date: 20150402
  Receipt Date: 20150402
  Transmission Date: 20150821
  Serious: Yes (Hospitalization)
  Sender: FDA-Public Use
  Company Number: IQ-GE HEALTHCARE MEDICAL DIAGNOSTICS-OMPQ-PR-1503S-0278

PATIENT
  Age: 56 Year
  Sex: Male
  Weight: 95 kg

DRUGS (5)
  1. OMNIPAQUE [Suspect]
     Active Substance: IOHEXOL
     Indication: DIAGNOSTIC PROCEDURE
  2. BISOPROLOL [Concomitant]
     Active Substance: BISOPROLOL
  3. CARVEDILOL. [Concomitant]
     Active Substance: CARVEDILOL
  4. OMNIPAQUE [Suspect]
     Active Substance: IOHEXOL
     Indication: MYOCARDIAL ISCHAEMIA
     Route: 042
     Dates: start: 20150325, end: 20150325
  5. AMARYL [Concomitant]
     Active Substance: GLIMEPIRIDE

REACTIONS (5)
  - Urticaria [Recovered/Resolved]
  - Injection site pain [Recovered/Resolved]
  - Hypotension [Recovered/Resolved]
  - Heart rate increased [Unknown]
  - Chills [Recovered/Resolved]

NARRATIVE: CASE EVENT DATE: 20150325
